FAERS Safety Report 5231135-1 (Version None)
Quarter: 2007Q1

REPORT INFORMATION
  Report Type: 
  Country: None (occurrence: None)
  Receive Date: 20070205
  Receipt Date: 20070205
  Transmission Date: 20070707
  Serious: Yes (Hospitalization)
  Sender: FDA-Public Use
  Company Number: None

PATIENT
  Sex: Female
  Weight: 60 kg

DRUGS (2)
  1. RITUXIMAB (MOAB C2B8 ANTI CD20,CHIMERIC)(687451) [Suspect]
     Indication: CENTRAL NERVOUS SYSTEM LYMPHOMA
     Dosage: 600 MG ICP SYMPTOMS BEGAN 3 DAYS BEFORE RITUXIMAB,BUT CONTINUED TO WORSEN AFTER THE RITUXIMAB GIVEN.
  2. DEXAMETHASONE [Concomitant]

REACTIONS (5)
  - APHASIA [None]
  - CONFUSIONAL STATE [None]
  - HEMIPARESIS [None]
  - SOMNOLENCE [None]
  - VOMITING [None]
